FAERS Safety Report 18109747 (Version 4)
Quarter: 2021Q3

REPORT INFORMATION
  Report Type: Spontaneous
  Country: US (occurrence: US)
  Receive Date: 20200804
  Receipt Date: 20210929
  Transmission Date: 20211014
  Serious: Yes (Hospitalization, Other)
  Sender: FDA-Public Use
  Company Number: US-PURDUE PHARMA-USA-2020-0153148

PATIENT
  Sex: Male

DRUGS (7)
  1. PERCOCET                           /00446701/ [Suspect]
     Active Substance: ACETAMINOPHEN\OXYCODONE HYDROCHLORIDE\OXYCODONE TEREPHTHALATE
     Indication: PAIN
     Dosage: UNK
     Route: 048
     Dates: start: 2017, end: 2019
  2. HYDROCODONE BITARTRATE (SIMILAR TO NDA 206627) [Suspect]
     Active Substance: HYDROCODONE BITARTRATE
     Indication: PRODUCT USED FOR UNKNOWN INDICATION
     Dosage: UNK
     Route: 048
  3. LORTAB [Suspect]
     Active Substance: ACETAMINOPHEN\HYDROCODONE BITARTRATE
     Dosage: 10 MG, MAXIMUM DOSE EVERY 4 HOURS
     Route: 048
     Dates: start: 1993, end: 2019
  4. VALIUM [Suspect]
     Active Substance: DIAZEPAM
     Indication: PAIN
     Dosage: UNK
     Route: 048
     Dates: start: 1990, end: 2019
  5. XANAX [Suspect]
     Active Substance: ALPRAZOLAM
     Indication: PAIN
     Dosage: UNK
     Route: 048
     Dates: end: 2019
  6. OXYCONTIN [Suspect]
     Active Substance: OXYCODONE HYDROCHLORIDE
     Indication: PAIN
     Dosage: MAXIMUM DOSE, EVERY 4 HOURS
     Route: 048
     Dates: start: 2000, end: 2019
  7. LORTAB [Suspect]
     Active Substance: ACETAMINOPHEN\HYDROCODONE BITARTRATE
     Indication: PAIN
     Dosage: 7.5 MG, MAXIMUM DOSE EVERY 4 HOURS
     Route: 048
     Dates: start: 1993, end: 2019

REACTIONS (7)
  - Drug dependence [Unknown]
  - Feeling abnormal [Unknown]
  - Memory impairment [Unknown]
  - Surgery [Unknown]
  - Depression [Unknown]
  - Impaired driving ability [Unknown]
  - Drug withdrawal maintenance therapy [Unknown]

NARRATIVE: CASE EVENT DATE: 1990
